FAERS Safety Report 10357953 (Version 2)
Quarter: 2014Q3

REPORT INFORMATION
  Report Type: Spontaneous
  Country: US (occurrence: US)
  Receive Date: 20140801
  Receipt Date: 20140814
  Transmission Date: 20150326
  Serious: Yes (Other)
  Sender: FDA-Public Use
  Company Number: US-PFIZER INC-2014212629

PATIENT
  Age: 26 Year
  Sex: Female
  Weight: 46.71 kg

DRUGS (3)
  1. DILANTIN [Suspect]
     Active Substance: PHENYTOIN
     Dosage: 100 MG, 2X/DAY
     Route: 048
  2. TEGRETOL [Concomitant]
     Active Substance: CARBAMAZEPINE
     Indication: CONVULSION
     Dosage: UNK
  3. DILANTIN [Suspect]
     Active Substance: PHENYTOIN
     Indication: GENERALISED TONIC-CLONIC SEIZURE
     Dosage: 100 MG, 3X/DAY
     Route: 048
     Dates: start: 19810629

REACTIONS (1)
  - Nervous system disorder [Unknown]

NARRATIVE: CASE EVENT DATE: 19840413
